FAERS Safety Report 6238039-6 (Version None)
Quarter: 2009Q2

REPORT INFORMATION
  Report Type: 
  Country: None (occurrence: None)
  Receive Date: 20090622
  Receipt Date: 20090619
  Transmission Date: 20091009
  Serious: Yes (Hospitalization)
  Sender: FDA-Public Use
  Company Number: US-BRISTOL-MYERS SQUIBB COMPANY-14614630

PATIENT
  Age: 87 Year
  Sex: Female

DRUGS (8)
  1. ABILIFY [Suspect]
     Route: 048
     Dates: start: 20090313, end: 20090416
  2. ASPIRIN [Concomitant]
     Dosage: ASPIRIN EC
     Route: 048
  3. CALCIUM [Concomitant]
     Dosage: TAKEN WITH MEALS.
     Route: 048
  4. NEXIUM [Concomitant]
     Route: 048
  5. SYNTHROID [Concomitant]
     Dosage: 1 DF=50MCG ALTERNATING WITH 75MCG ON VARIOUS DAYS OF THE WEEK.
     Route: 048
  6. LOPRESSOR [Concomitant]
     Route: 048
  7. MULTI-VITAMIN [Concomitant]
     Route: 048
  8. ZOCOR [Concomitant]
     Dosage: AT BED TIME.
     Route: 048

REACTIONS (7)
  - AKATHISIA [None]
  - DEMENTIA [None]
  - DROOLING [None]
  - FEELING HOT [None]
  - INSOMNIA [None]
  - MEDICATION ERROR [None]
  - SEDATION [None]
